FAERS Safety Report 19052339 (Version 1)
Quarter: 2021Q1

REPORT INFORMATION
  Report Type: Spontaneous
  Country: FR (occurrence: FR)
  Receive Date: 20210324
  Receipt Date: 20210324
  Transmission Date: 20210420
  Serious: Yes (Other)
  Sender: FDA-Public Use
  Company Number: FR-SUN PHARMACEUTICAL INDUSTRIES LTD-2021R1-286459

PATIENT
  Age: 45 Year
  Sex: Male

DRUGS (3)
  1. CYCLOPHOSPHAMIDE. [Suspect]
     Active Substance: CYCLOPHOSPHAMIDE
     Indication: THYMIC CANCER METASTATIC
     Dosage: 500 MG/M2 EVERY 3 WK[15] FOR SIX CYCLES
     Route: 065
     Dates: start: 2016
  2. DOXORUBICIN [Suspect]
     Active Substance: DOXORUBICIN
     Indication: THYMIC CANCER METASTATIC
     Dosage: 50 MG/M2 EVERY 3 WK[15] FOR SIX CYCLES
     Route: 065
     Dates: start: 2016
  3. CISPLATIN. [Suspect]
     Active Substance: CISPLATIN
     Indication: THYMIC CANCER METASTATIC
     Dosage: 50 MG/M2 EVERY 3 WK[15] FOR SIX CYCLES
     Route: 065
     Dates: start: 2016

REACTIONS (1)
  - Therapy partial responder [Unknown]
